FAERS Safety Report 6072910-3 (Version None)
Quarter: 2009Q1

REPORT INFORMATION
  Report Type: 
  Country: None (occurrence: None)
  Receive Date: 20090205
  Receipt Date: 20090120
  Transmission Date: 20090719
  Serious: Yes (Hospitalization)
  Sender: FDA-Public Use
  Company Number: 2009S1001172

PATIENT
  Age: 60 Year
  Sex: Female

DRUGS (4)
  1. AZATHIOPRINE [Suspect]
     Indication: DRUG USE FOR UNKNOWN INDICATION
     Dosage: 125 MG
  2. TACROLIMUS [Suspect]
     Indication: DRUG USE FOR UNKNOWN INDICATION
     Dosage: 9 MG;DAILY
  3. GANCICLOVIR [Concomitant]
  4. TAZOCIN (PIP/TAZO) [Concomitant]

REACTIONS (17)
  - ASPARTATE AMINOTRANSFERASE INCREASED [None]
  - BLOOD ALKALINE PHOSPHATASE INCREASED [None]
  - C-REACTIVE PROTEIN INCREASED [None]
  - CHILLS [None]
  - COUGH [None]
  - CYTOMEGALOVIRUS INFECTION [None]
  - DYSPNOEA [None]
  - HAEMOGLOBIN DECREASED [None]
  - MALAISE [None]
  - NIGHT SWEATS [None]
  - PALLOR [None]
  - PERICARDIAL EFFUSION [None]
  - PYREXIA [None]
  - RALES [None]
  - RESPIRATORY TRACT INFECTION [None]
  - TACHYCARDIA [None]
  - TUBERCULOSIS [None]
